FAERS Safety Report 6413126-8 (Version None)
Quarter: 2009Q4

REPORT INFORMATION
  Report Type: 
  Country: None (occurrence: None)
  Receive Date: 20091026
  Receipt Date: 20091020
  Transmission Date: 20100525
  Serious: No
  Sender: FDA-Public Use
  Company Number: US-B.I. PHARMACEUTICALS,INC./RIDGEFIELD-2009-BP-12253BP

PATIENT
  Sex: Female

DRUGS (2)
  1. MOBIC [Suspect]
     Indication: PAIN IN EXTREMITY
     Dosage: 7.5 MG
     Route: 048
     Dates: start: 20091018, end: 20091018
  2. WELLBUTRIN [Concomitant]
     Indication: DEPRESSION

REACTIONS (4)
  - ABDOMINAL PAIN [None]
  - ASTHENIA [None]
  - INSOMNIA [None]
  - NAUSEA [None]
